FAERS Safety Report 7930596-4 (Version None)
Quarter: 2011Q4

REPORT INFORMATION
  Report Type: 
  Country: None (occurrence: None)
  Receive Date: 20111121
  Receipt Date: 20111115
  Transmission Date: 20120403
  Serious: Yes (Hospitalization)
  Sender: FDA-Public Use
  Company Number: TR-MEDIMMUNE-MEDI-0013931

PATIENT
  Sex: Male
  Weight: 5 kg

DRUGS (2)
  1. SYNAGIS [Suspect]
     Route: 030
     Dates: start: 20111025, end: 20111025
  2. FUROSEMIDE [Concomitant]
     Route: 048

REACTIONS (3)
  - COUGH [None]
  - BRONCHITIS [None]
  - PRODUCTIVE COUGH [None]
